FAERS Safety Report 12310956 (Version 1)
Quarter: 2016Q2

REPORT INFORMATION
  Report Type: Spontaneous
  Country: US (occurrence: US)
  Receive Date: 20160427
  Receipt Date: 20160427
  Transmission Date: 20160815
  Serious: No
  Sender: FDA-Public Use
  Company Number: US-PFIZER INC-2016188892

PATIENT
  Age: 52 Year

DRUGS (1)
  1. LYRICA [Suspect]
     Active Substance: PREGABALIN
     Indication: NEUROPATHY PERIPHERAL
     Dosage: 75 MG, 3X/DAY
     Route: 048

REACTIONS (8)
  - Pain [Unknown]
  - Gait disturbance [Unknown]
  - Burning sensation [Unknown]
  - Paraesthesia [Unknown]
  - Impaired work ability [Unknown]
  - Sensory disturbance [Unknown]
  - Sleep disorder [Unknown]
  - Drug effect incomplete [Unknown]
